FAERS Safety Report 9734846 (Version 2)
Quarter: 2014Q1

REPORT INFORMATION
  Report Type: Spontaneous
  Country: CA (occurrence: CA)
  Receive Date: 20131206
  Receipt Date: 20140109
  Transmission Date: 20141002
  Serious: Yes (Death, Other)
  Sender: FDA-Public Use
  Company Number: CA-JNJFOC-20131202588

PATIENT
  Age: 71 Year
  Sex: Male

DRUGS (4)
  1. ITRACONAZOLE [Suspect]
     Indication: BRONCHOPULMONARY ASPERGILLOSIS
     Route: 048
     Dates: start: 2006
  2. BUDESONIDE [Interacting]
     Indication: ASTHMA
     Dosage: TOTAL OF 400 UG/DAY FOR OVER 3 YEARS INCREASED TO 800 UG/DAY IN THE PAST 6 MONTHS
     Route: 055
  3. FORMOTEROL [Suspect]
     Indication: ASTHMA
     Route: 055
  4. HYDROCORTISONE [Suspect]
     Indication: ASTHMA
     Route: 048

REACTIONS (4)
  - Myocardial infarction [Fatal]
  - Cushing^s syndrome [Unknown]
  - Secondary adrenocortical insufficiency [Unknown]
  - Drug interaction [Unknown]
